FAERS Safety Report 21635319 (Version 1)
Quarter: 2022Q4

REPORT INFORMATION
  Report Type: Report from Study
  Country: US (occurrence: US)
  Receive Date: 20221123
  Receipt Date: 20221123
  Transmission Date: 20230113
  Serious: No
  Sender: FDA-Public Use
  Company Number: US-ABBVIE-22K-163-4413460-00

PATIENT
  Sex: Male

DRUGS (1)
  1. HUMIRA [Suspect]
     Active Substance: ADALIMUMAB
     Indication: Colitis ulcerative
     Route: 058

REACTIONS (11)
  - Arthritis [Unknown]
  - Pain [Unknown]
  - Feeling abnormal [Recovering/Resolving]
  - Hypertension [Unknown]
  - Dizziness [Unknown]
  - Depressed mood [Unknown]
  - Discomfort [Unknown]
  - Back pain [Unknown]
  - Influenza [Recovering/Resolving]
  - COVID-19 [Recovering/Resolving]
  - Gastric disorder [Unknown]
